FAERS Safety Report 9265860 (Version 1)
Quarter: 2013Q2

REPORT INFORMATION
  Report Type: Spontaneous
  Country: BR (occurrence: BR)
  Receive Date: 20130501
  Receipt Date: 20130501
  Transmission Date: 20140414
  Serious: Yes (Hospitalization, Other)
  Sender: FDA-Public Use
  Company Number: BR-ASTRAZENECA-2013SE28740

PATIENT
  Age: 73 Year
  Sex: Male
  Weight: 80 kg

DRUGS (6)
  1. CRESTOR [Suspect]
     Indication: BLOOD CHOLESTEROL INCREASED
     Dosage: UNKNOWN DOSE DAILY
     Route: 048
     Dates: start: 2007
  2. DIAMICRON [Concomitant]
     Indication: DIABETES MELLITUS
     Dates: start: 2008
  3. CITALOPRAM [Concomitant]
     Dates: start: 2005
  4. CEBRALAT [Concomitant]
     Dates: start: 2005
  5. ASPIRIN PREVENT [Concomitant]
     Dates: start: 2005
  6. METFORMIN HYDROCHLORIDE [Concomitant]
     Indication: DIABETES MELLITUS
     Dates: start: 2008

REACTIONS (3)
  - Coronary artery occlusion [Recovered/Resolved]
  - Diabetes mellitus [Recovering/Resolving]
  - Venous occlusion [Not Recovered/Not Resolved]
